FAERS Safety Report 7207680-6 (Version None)
Quarter: 2011Q1

REPORT INFORMATION
  Report Type: 
  Country: None (occurrence: None)
  Receive Date: 20110103
  Receipt Date: 20101227
  Transmission Date: 20110831
  Serious: Yes (Other)
  Sender: FDA-Public Use
  Company Number: US-GENENTECH-310314

PATIENT

DRUGS (15)
  1. FLOVENT [Concomitant]
     Indication: ASTHMA
     Dosage: 1 PUFF, BID
     Route: 055
  2. SINGULAIR [Concomitant]
     Indication: ASTHMA
     Dosage: 10 MG, QHS
     Route: 048
  3. METFORMIN HCL [Concomitant]
     Indication: DIABETES MELLITUS
     Dosage: UNK
     Route: 048
  4. ASCORBIC ACID [Concomitant]
     Indication: PRODUCT USED FOR UNKNOWN INDICATION
     Dosage: UNK
     Route: 048
  5. ADVAIR [Concomitant]
     Indication: ASTHMA
     Dosage: 2 PUFF, BID
     Route: 055
  6. VITAMIN E [Concomitant]
     Indication: PRODUCT USED FOR UNKNOWN INDICATION
     Dosage: UNK
     Route: 048
  7. ALLEGRA [Concomitant]
     Indication: HYPERSENSITIVITY
     Dosage: 180 MG, QD
     Route: 048
  8. ZANTAC [Concomitant]
     Indication: DERMATITIS
     Dosage: 75 MG, BID
     Route: 048
  9. LIPITOR [Concomitant]
     Indication: BLOOD CHOLESTEROL
     Dosage: UNK
     Route: 048
  10. ASTELIN [Concomitant]
     Indication: HYPERSENSITIVITY
     Dosage: 1 UNK, QD
     Route: 045
  11. XOLAIR [Suspect]
     Indication: PRODUCT USED FOR UNKNOWN INDICATION
     Dosage: 150 MG, UNK
  12. IMMUNE GLOBULIN INTRAVENOUS (HUMAN) [Concomitant]
     Indication: PRODUCT USED FOR UNKNOWN INDICATION
     Dosage: UNK
  13. NEXIUM [Concomitant]
     Indication: GASTROOESOPHAGEAL REFLUX DISEASE
     Dosage: 40 MG, QD
     Route: 048
  14. PATADAY [Concomitant]
     Indication: EYE ALLERGY
     Dosage: 1 GTT, QD
     Route: 047
  15. NASONEX [Concomitant]
     Indication: HYPERSENSITIVITY
     Dosage: 2 UNK, BID
     Route: 045

REACTIONS (1)
  - ANAPHYLACTIC SHOCK [None]
